FAERS Safety Report 6136599-7 (Version None)
Quarter: 2009Q1

REPORT INFORMATION
  Report Type: 
  Country: None (occurrence: None)
  Receive Date: 20090330
  Receipt Date: 20090318
  Transmission Date: 20090719
  Serious: Yes (Life-Threatening)
  Sender: FDA-Public Use
  Company Number: JP-PFIZER INC-2009185916

PATIENT

DRUGS (2)
  1. SULPERAZON [Suspect]
     Indication: LUNG ABSCESS
     Dosage: FREQUENCY: 2X/DAY,
     Route: 042
     Dates: start: 20081205, end: 20081207
  2. ZOSYN [Suspect]
     Indication: LUNG ABSCESS
     Dosage: FREQUENCY: 3X/DAY,
     Route: 042
     Dates: start: 20081207, end: 20081210

REACTIONS (2)
  - PLATELET COUNT DECREASED [None]
  - THROMBOCYTOPENIA [None]
